FAERS Safety Report 6711771-3 (Version None)
Quarter: 2010Q2

REPORT INFORMATION
  Report Type: 
  Country: None (occurrence: None)
  Receive Date: 20100505
  Receipt Date: 20100428
  Transmission Date: 20101027
  Serious: Yes (Other)
  Sender: FDA-Public Use
  Company Number: B0646799A

PATIENT
  Age: 53 Year
  Sex: Male

DRUGS (6)
  1. KIVEXA [Suspect]
     Indication: ANTIRETROVIRAL THERAPY
     Dates: start: 19961105, end: 20080522
  2. ABACAVIR [Suspect]
     Indication: ANTIRETROVIRAL THERAPY
     Dates: start: 20000308, end: 20080522
  3. KALETRA [Suspect]
     Indication: ANTIRETROVIRAL THERAPY
     Dates: start: 20000308, end: 20040930
  4. NORVIR [Suspect]
     Indication: ANTIRETROVIRAL THERAPY
     Dates: start: 19970218, end: 20091215
  5. SUSTIVA [Suspect]
     Indication: ANTIRETROVIRAL THERAPY
     Dates: start: 20000308, end: 20091201
  6. REYATAZ [Suspect]
     Indication: ANTIRETROVIRAL THERAPY
     Dates: start: 20041001, end: 20091214

REACTIONS (3)
  - ABNORMAL DREAMS [None]
  - DIARRHOEA [None]
  - MYOCARDIAL INFARCTION [None]
